FAERS Safety Report 19417515 (Version 1)
Quarter: 2021Q2

REPORT INFORMATION
  Report Type: Spontaneous
  Country: US (occurrence: US)
  Receive Date: 20210614
  Receipt Date: 20210614
  Transmission Date: 20210717
  Serious: Yes (Hospitalization, Other)
  Sender: FDA-Public Use
  Company Number: US-SUN PHARMACEUTICAL INDUSTRIES LTD-2021R1-299811

PATIENT
  Age: 81 Year
  Sex: Female

DRUGS (2)
  1. NITROFURANTOIN. [Suspect]
     Active Substance: NITROFURANTOIN
     Indication: HYDRONEPHROSIS
  2. NITROFURANTOIN. [Suspect]
     Active Substance: NITROFURANTOIN
     Indication: PYELONEPHRITIS ACUTE
     Dosage: 100 MG EVERY 12 HOURS
     Route: 065

REACTIONS (2)
  - Pulmonary fibrosis [Recovered/Resolved]
  - Interstitial lung disease [Recovering/Resolving]
